FAERS Safety Report 6621780-0 (Version None)
Quarter: 2010Q1

REPORT INFORMATION
  Report Type: 
  Country: None (occurrence: None)
  Receive Date: 20100309
  Receipt Date: 20090420
  Transmission Date: 20100710
  Serious: No
  Sender: FDA-Public Use
  Company Number: US-ALLERGAN-0903130US

PATIENT
  Age: 56 Year
  Sex: Female
  Weight: 61.224 kg

DRUGS (2)
  1. BOTOX [Suspect]
     Indication: MUSCLE SPASTICITY
     Dosage: 400 UNITS, SINGLE
     Route: 030
     Dates: start: 20080919, end: 20080919
  2. BOTOX [Suspect]
     Dosage: UNK, UNKNOWN
     Route: 030
     Dates: start: 20070101

REACTIONS (2)
  - ASTHENIA [None]
  - FATIGUE [None]
